FAERS Safety Report 6942591-2 (Version None)
Quarter: 2010Q3

REPORT INFORMATION
  Report Type: 
  Country: None (occurrence: None)
  Receive Date: 20100826
  Receipt Date: 20100817
  Transmission Date: 20110219
  Serious: Yes (Hospitalization)
  Sender: FDA-Public Use
  Company Number: TR-ABBOTT-10P-161-0664368-00

PATIENT
  Age: 38 Year
  Sex: Female

DRUGS (3)
  1. VALPROATE SODIUM [Suspect]
     Indication: BIPOLAR DISORDER
  2. OLANZAPINE [Suspect]
     Indication: BIPOLAR DISORDER
  3. PAROXETINE HCL [Suspect]
     Indication: BIPOLAR DISORDER

REACTIONS (3)
  - BENIGN INTRACRANIAL HYPERTENSION [None]
  - PAPILLOEDEMA [None]
  - WEIGHT INCREASED [None]
